FAERS Safety Report 14302703 (Version 1)
Quarter: 2017Q4

REPORT INFORMATION
  Report Type: Spontaneous
  Country: US (occurrence: US)
  Receive Date: 20171218
  Receipt Date: 20171218
  Transmission Date: 20180321
  Serious: No
  Sender: FDA-Public Use
  Company Number: None

PATIENT
  Age: 47 Year
  Sex: Female

DRUGS (6)
  1. ATHROTEC [Concomitant]
  2. VALTREX [Concomitant]
     Active Substance: VALACYCLOVIR HYDROCHLORIDE
  3. VIVITROL [Suspect]
     Active Substance: NALTREXONE
     Indication: DEPENDENCE
     Dosage: 1 INJ    EVERY 28 DAYS
     Route: 030
     Dates: start: 20170612
  4. MOBIC [Concomitant]
     Active Substance: MELOXICAM
  5. PREVACID [Concomitant]
     Active Substance: LANSOPRAZOLE
  6. NORASC [Concomitant]

REACTIONS (3)
  - Injection site bruising [None]
  - Injection site cellulitis [None]
  - Injection site reaction [None]

NARRATIVE: CASE EVENT DATE: 20170612
